FAERS Safety Report 15596589 (Version 1)
Quarter: 2018Q4

REPORT INFORMATION
  Report Type: Spontaneous
  Country: KE (occurrence: KE)
  Receive Date: 20181107
  Receipt Date: 20181107
  Transmission Date: 20190205
  Serious: Yes (Life-Threatening, Other)
  Sender: FDA-Public Use
  Company Number: KE-BAYER-2017-216012

PATIENT
  Age: 22 Year
  Sex: Female

DRUGS (5)
  1. ISOTRETINOIN. [Concomitant]
     Active Substance: ISOTRETINOIN
     Indication: SCAR
  2. YASMIN [Suspect]
     Active Substance: DROSPIRENONE\ETHINYL ESTRADIOL
     Route: 048
  3. ISOTRETINOIN. [Concomitant]
     Active Substance: ISOTRETINOIN
     Indication: ACNE
  4. SPIRONOLACTONE. [Concomitant]
     Active Substance: SPIRONOLACTONE
     Indication: ACNE
  5. SPIRONOLACTONE. [Concomitant]
     Active Substance: SPIRONOLACTONE
     Indication: SCAR

REACTIONS (13)
  - Heart rate increased [None]
  - Gait disturbance [None]
  - Pulmonary embolism [Recovered/Resolved]
  - Suicidal ideation [None]
  - Hypotension [Recovered/Resolved]
  - Depression [None]
  - Malaise [None]
  - Chest pain [Recovered/Resolved]
  - Osteoporosis [None]
  - Dyspnoea [Recovered/Resolved]
  - Palpitations [Recovered/Resolved]
  - Conversion disorder [None]
  - Nasopharyngitis [None]

NARRATIVE: CASE EVENT DATE: 20150322
